FAERS Safety Report 10009527 (Version 1)
Quarter: 2014Q1

REPORT INFORMATION
  Report Type: Spontaneous
  Country: US (occurrence: US)
  Receive Date: 20140312
  Receipt Date: 20140312
  Transmission Date: 20141002
  Serious: No
  Sender: FDA-Public Use
  Company Number: US-INCYTE CORPORATION-2012IN001816

PATIENT
  Age: 71 Year
  Sex: Male

DRUGS (15)
  1. JAKAFI [Suspect]
     Dosage: 5 MG, BID
     Route: 048
  2. MOTRIN [Concomitant]
  3. ASPIRIN [Concomitant]
  4. DEXLANSOPRAZOLE [Concomitant]
  5. FLONASE [Concomitant]
  6. AFRIN [Concomitant]
  7. FISH OIL [Concomitant]
  8. VITAMIN D [Concomitant]
  9. ZETIA [Concomitant]
  10. XANAX [Concomitant]
  11. SOMA [Concomitant]
  12. NITROGLYCERIN [Concomitant]
  13. TYLENOL [Concomitant]
  14. MICARDIS [Concomitant]
  15. NASAL PREPARATIONS [Concomitant]

REACTIONS (3)
  - White blood cell count abnormal [Unknown]
  - Platelet count abnormal [Unknown]
  - Nasal abscess [Unknown]
